FAERS Safety Report 4435570-0 (Version None)
Quarter: 2004Q3

REPORT INFORMATION
  Report Type: 
  Country: None (occurrence: None)
  Receive Date: 20040827
  Receipt Date: 20040809
  Transmission Date: 20050211
  Serious: Yes (Life-Threatening, Hospitalization, Other)
  Sender: FDA-Public Use
  Company Number: US-MERCK-0408USA00874

PATIENT
  Age: 54 Year
  Sex: Female
  Weight: 64 kg

DRUGS (4)
  1. EMEND [Suspect]
     Indication: NAUSEA
     Route: 048
  2. EMEND [Suspect]
     Indication: VOMITING
     Route: 048
  3. CYTOXAN [Concomitant]
     Route: 065
  4. ADRIAMYCIN PFS [Concomitant]
     Route: 065

REACTIONS (2)
  - CONVULSION [None]
  - HYPONATRAEMIA [None]
